FAERS Safety Report 5021763-0 (Version None)
Quarter: 2006Q2

REPORT INFORMATION
  Report Type: 
  Country: None (occurrence: None)
  Receive Date: 20060605
  Receipt Date: 20060522
  Transmission Date: 20061013
  Serious: Yes (Other)
  Sender: FDA-Public Use
  Company Number: 2006066643

PATIENT
  Age: 60 Year
  Sex: Male
  Weight: 80.7403 kg

DRUGS (3)
  1. VIAGRA [Suspect]
     Indication: TESTICULAR PAIN
     Dosage: 50 MG (50 MG, 1 IN 1 D), ORAL
  2. ALL OTHER THERAPEUTIC PRODUCTS [Concomitant]
  3. MEVACOR [Concomitant]

REACTIONS (6)
  - HAEMATOCHEZIA [None]
  - HAEMORRHOIDS [None]
  - HYPERTENSION [None]
  - MUCOUS STOOLS [None]
  - PROSTATIC DISORDER [None]
  - RECTAL HAEMORRHAGE [None]
